FAERS Safety Report 19737863 (Version 2)
Quarter: 2021Q3

REPORT INFORMATION
  Report Type: Other
  Country: IT (occurrence: IT)
  Receive Date: 20210823
  Receipt Date: 20210910
  Transmission Date: 20211014
  Serious: Yes (Hospitalization)
  Sender: FDA-Public Use
  Company Number: IT-SHIONOGI, INC-2021000349

PATIENT
  Age: 61 Year
  Sex: Female

DRUGS (9)
  1. LINEZOLID. [Concomitant]
     Active Substance: LINEZOLID
     Indication: BACTERIAL INFECTION
     Dosage: 2 {DF}, QD
     Route: 042
     Dates: start: 20210725, end: 20210728
  2. FETROJA [Suspect]
     Active Substance: CEFIDEROCOL SULFATE TOSYLATE
     Indication: BACTERIAL INFECTION
     Dosage: 6 DF, EVERY 1 DAY
     Route: 042
     Dates: start: 20210728, end: 20210804
  3. CLEXANE T [Concomitant]
     Active Substance: ENOXAPARIN SODIUM
     Indication: PRODUCT USED FOR UNKNOWN INDICATION
     Dosage: UNK
     Route: 065
  4. NORVASC [Concomitant]
     Active Substance: AMLODIPINE BESYLATE
     Indication: PRODUCT USED FOR UNKNOWN INDICATION
     Dosage: UNK
     Route: 065
  5. VANCOMYCIN CLORIDRATO [Concomitant]
     Indication: INFECTION
     Dosage: 2 G, QD
     Route: 042
     Dates: start: 20210705, end: 20210725
  6. FERLIXIT 62.5 [Concomitant]
     Active Substance: SODIUM FERRIC GLUCONATE COMPLEX
     Indication: PRODUCT USED FOR UNKNOWN INDICATION
     Dosage: UNK
     Route: 065
  7. PREFOLIC 50 MG/3 ML POLVERE E SOLVENTE PER SOLUZIONE INIETTABILE [Concomitant]
     Indication: PRODUCT USED FOR UNKNOWN INDICATION
     Dosage: 50 MG/3 ML POWDER AND SOLVENT FOR SOLUTION FOR INJECTION
     Route: 058
  8. COLISTIMETATO SODICO [Concomitant]
     Indication: BACTERIAL INFECTION
     Dosage: 9 M[IU], QD
     Route: 042
     Dates: start: 20210719, end: 20210728
  9. PANTOPRAZOLE SODIUM. [Concomitant]
     Active Substance: PANTOPRAZOLE SODIUM
     Indication: PRODUCT USED FOR UNKNOWN INDICATION
     Dosage: 40 MG, POWDER FOR SOLUTION FOR INJECTION
     Route: 058

REACTIONS (2)
  - Leukocytosis [Recovering/Resolving]
  - Eosinophilia [Recovering/Resolving]

NARRATIVE: CASE EVENT DATE: 20210803
